FAERS Safety Report 19047114 (Version 2)
Quarter: 2021Q1

REPORT INFORMATION
  Report Type: Spontaneous
  Country: NZ (occurrence: NZ)
  Receive Date: 20210323
  Receipt Date: 20210326
  Transmission Date: 20210420
  Serious: Yes (Other)
  Sender: FDA-Public Use
  Company Number: NZ-BAYER-2021-104891

PATIENT
  Age: 29 Year
  Sex: Female

DRUGS (1)
  1. MIRENA [Suspect]
     Active Substance: LEVONORGESTREL
     Dosage: 20 ?G PER DAY,CONTINUOUSLY
     Route: 015
     Dates: start: 201807, end: 20210309

REACTIONS (5)
  - Complication of device removal [None]
  - Genital haemorrhage [None]
  - Device expulsion [Recovered/Resolved]
  - Device breakage [None]
  - Device expulsion [None]

NARRATIVE: CASE EVENT DATE: 202101
